FAERS Safety Report 9067632 (Version 1)
Quarter: 2013Q1

REPORT INFORMATION
  Report Type: Spontaneous
  Country: US (occurrence: US)
  Receive Date: 20130129
  Receipt Date: 20130129
  Transmission Date: 20140127
  Serious: No
  Sender: FDA-Public Use
  Company Number: US-BAYER-2013-008853

PATIENT
  Age: 78 Year
  Sex: Male
  Weight: 86 kg

DRUGS (3)
  1. ALEVE CAPLET/TABLET,MIDOL EXTENDED RELIEF CAPLET [Suspect]
     Dosage: 1 DF, PRN
     Route: 048
     Dates: start: 2004, end: 20121127
  2. CRESTOR [Concomitant]
  3. CENTRUM [Concomitant]

REACTIONS (3)
  - Foreign body [Recovered/Resolved]
  - Cough [Recovered/Resolved]
  - Wrong technique in drug usage process [None]
